FAERS Safety Report 5467054-5 (Version None)
Quarter: 2007Q3

REPORT INFORMATION
  Report Type: 
  Country: None (occurrence: None)
  Receive Date: 20070925
  Receipt Date: 20070921
  Transmission Date: 20080115
  Serious: Yes (Other)
  Sender: FDA-Public Use
  Company Number: B0488369A

PATIENT
  Age: 73 Year
  Sex: Male

DRUGS (5)
  1. DILATREND [Suspect]
     Indication: CORONARY ANGIOPLASTY
     Dosage: 6.25MG PER DAY
     Route: 048
     Dates: start: 20050210
  2. HYZAAR [Suspect]
     Indication: ESSENTIAL HYPERTENSION
     Dosage: 62.5MG PER DAY
     Route: 048
     Dates: start: 20060714, end: 20070622
  3. PRAVASTATIN [Suspect]
     Indication: CAROTID ARTERY STENOSIS
     Dosage: 40MG PER DAY
     Route: 048
     Dates: start: 20050131, end: 20070630
  4. ASPIRIN [Concomitant]
  5. TIMOPTIC [Concomitant]

REACTIONS (1)
  - CHRONIC MYELOID LEUKAEMIA [None]
